FAERS Safety Report 18437770 (Version 2)
Quarter: 2022Q2

REPORT INFORMATION
  Report Type: Report from Study
  Country: AU (occurrence: AU)
  Receive Date: 20201028
  Receipt Date: 20220525
  Transmission Date: 20220720
  Serious: Yes (Hospitalization)
  Sender: FDA-Public Use
  Company Number: AU-SA-2019SA047996

PATIENT
  Age: 73 Year
  Sex: Female
  Weight: 57.1 kg

DRUGS (21)
  1. ISATUXIMAB [Suspect]
     Active Substance: ISATUXIMAB
     Indication: Plasma cell myeloma
     Dosage: 10 MG/KG, QW
     Route: 042
     Dates: start: 20190212, end: 20190212
  2. ISATUXIMAB [Suspect]
     Active Substance: ISATUXIMAB
     Dosage: 10 MG/KG, QW
     Route: 042
     Dates: start: 20190205, end: 20190205
  3. BORTEZOMIB [Suspect]
     Active Substance: BORTEZOMIB
     Indication: Plasma cell myeloma
     Dosage: 1.3 MG/M2, DAYS 1, 4, 8, 11, 22, 25, 29, AND 32
     Route: 058
     Dates: start: 20190208, end: 20190208
  4. BORTEZOMIB [Suspect]
     Active Substance: BORTEZOMIB
     Dosage: 1.3 MG/M2, DAYS 1, 4, 8, 11, 22, 25, 29, AND 32
     Route: 058
     Dates: start: 20190205, end: 20190205
  5. LENALIDOMIDE [Suspect]
     Active Substance: LENALIDOMIDE
     Indication: Plasma cell myeloma
     Dosage: 25 MG, QD
     Route: 048
  6. LENALIDOMIDE [Suspect]
     Active Substance: LENALIDOMIDE
     Dosage: 25 MG, QD
     Route: 048
     Dates: start: 20190205, end: 20190211
  7. DEXAMETHASONE [Suspect]
     Active Substance: DEXAMETHASONE
     Indication: Plasma cell myeloma
     Dosage: 20 MG, DAYS 1, 2, 4, 5, 8, 9, 11, 12, 15, 22, 23, 25, 26, 29, 30, 32, AND 33
     Route: 048
     Dates: start: 20190209, end: 20190209
  8. DEXAMETHASONE [Suspect]
     Active Substance: DEXAMETHASONE
     Dosage: 20 MG, QW DAYS OF ISATUXIMAB ADMINISTRATION
     Route: 042
     Dates: start: 20190205, end: 20190205
  9. VITAMINS [Concomitant]
     Active Substance: VITAMINS
     Indication: Prophylaxis
     Dosage: UNK UNK, UNK
     Route: 048
     Dates: start: 1990, end: 20190205
  10. TIBOLONE [Concomitant]
     Active Substance: TIBOLONE
     Indication: Prophylaxis
     Dosage: UNK UNK, UNK
     Route: 048
     Dates: start: 1992
  11. AMITRIPTYLINE [Concomitant]
     Active Substance: AMITRIPTYLINE
     Indication: Prophylaxis
     Dosage: UNK
     Route: 048
     Dates: start: 201809, end: 20190222
  12. PANADOL [Concomitant]
     Active Substance: ACETAMINOPHEN
     Indication: Prophylaxis
     Dosage: UNK UNK, UNK
     Route: 048
     Dates: start: 201811
  13. DOCUSATE SODIUM\SENNOSIDES A AND B [Concomitant]
     Active Substance: DOCUSATE SODIUM\SENNOSIDES A AND B
     Indication: Prophylaxis
     Dosage: UNK UNK, UNK
     Route: 048
     Dates: start: 2017, end: 20190211
  14. DOCUSATE SODIUM\SENNOSIDES A AND B [Concomitant]
     Active Substance: DOCUSATE SODIUM\SENNOSIDES A AND B
     Dosage: UNK
     Route: 048
     Dates: start: 20190212
  15. ALLOPURINOL [Concomitant]
     Active Substance: ALLOPURINOL
     Indication: Prophylaxis
     Dosage: UNK
     Route: 048
     Dates: start: 20190205, end: 20190211
  16. VALACYCLOVIR HYDROCHLORIDE [Concomitant]
     Active Substance: VALACYCLOVIR HYDROCHLORIDE
     Indication: Prophylaxis
     Dosage: UNK UNK, UNK
     Route: 048
     Dates: start: 20190205
  17. CIPROFLOXACIN [Concomitant]
     Active Substance: CIPROFLOXACIN
     Indication: Prophylaxis
     Dosage: UNK UNK, UNK
     Route: 048
     Dates: start: 20190205
  18. ASPIRIN [Concomitant]
     Active Substance: ASPIRIN
     Indication: Prophylaxis
     Dosage: UNK UNK, UNK
     Route: 048
     Dates: start: 20190205
  19. RANITIDINE [Concomitant]
     Active Substance: RANITIDINE
     Indication: Prophylaxis
     Dosage: 50 MG, 1X
     Route: 042
     Dates: start: 20190205, end: 20190205
  20. PROMETHAZINE [Concomitant]
     Active Substance: PROMETHAZINE HYDROCHLORIDE
     Indication: Prophylaxis
     Dosage: 25 MG, 1X
     Route: 042
     Dates: start: 20190205, end: 20190205
  21. PROMETHAZINE [Concomitant]
     Active Substance: PROMETHAZINE HYDROCHLORIDE
     Dosage: 12.5 MG, 1X
     Route: 042
     Dates: start: 20190205, end: 20190205

REACTIONS (1)
  - Ileus [Recovered/Resolved]

NARRATIVE: CASE EVENT DATE: 20190218
